FAERS Safety Report 23760278 (Version 2)
Quarter: 2024Q2

REPORT INFORMATION
  Report Type: Spontaneous
  Country: JP (occurrence: JP)
  Receive Date: 20240419
  Receipt Date: 20240520
  Transmission Date: 20240715
  Serious: Yes (Hospitalization, Other)
  Sender: FDA-Public Use
  Company Number: JP-TAKEDA-2024TJP005622

PATIENT
  Age: 3 Decade
  Sex: Male

DRUGS (7)
  1. TRINTELLIX [Suspect]
     Active Substance: VORTIOXETINE HYDROBROMIDE
     Indication: Bipolar II disorder
     Dosage: 10 MILLIGRAM, QD
     Route: 048
  2. TRINTELLIX [Suspect]
     Active Substance: VORTIOXETINE HYDROBROMIDE
     Dosage: 5 MILLIGRAM
     Route: 048
     Dates: start: 20240322, end: 20240329
  3. LITHIUM CARBONATE [Concomitant]
     Active Substance: LITHIUM CARBONATE
     Dosage: UNK
     Route: 065
     Dates: end: 20240329
  4. DAYVIGO [Concomitant]
     Active Substance: LEMBOREXANT
     Dosage: 2.5 MILLIGRAM
     Route: 065
     Dates: end: 20240329
  5. DAYVIGO [Concomitant]
     Active Substance: LEMBOREXANT
     Dosage: 5 MILLIGRAM
     Route: 065
     Dates: start: 20240406
  6. BROMAZEPAM [Concomitant]
     Active Substance: BROMAZEPAM
     Dosage: UNK
     Route: 065
     Dates: end: 20240329
  7. LEXAPRO [Concomitant]
     Active Substance: ESCITALOPRAM OXALATE
     Dosage: UNK
     Route: 065
     Dates: end: 20240329

REACTIONS (10)
  - Neuroleptic malignant syndrome [Recovered/Resolved]
  - Fatigue [Unknown]
  - Pneumonia aspiration [Unknown]
  - Back pain [Unknown]
  - Drooling [Unknown]
  - Dysphagia [Unknown]
  - Headache [Unknown]
  - Dizziness [Unknown]
  - Off label use [Unknown]
  - Underdose [Unknown]

NARRATIVE: CASE EVENT DATE: 20240322
